FAERS Safety Report 6374693-6 (Version None)
Quarter: 2009Q3

REPORT INFORMATION
  Report Type: 
  Country: None (occurrence: None)
  Receive Date: 20090924
  Receipt Date: 20090916
  Transmission Date: 20100115
  Serious: Yes (Death, Other)
  Sender: FDA-Public Use
  Company Number: US-JNJFOC-20060904811

PATIENT
  Sex: Female
  Weight: 82.1 kg

DRUGS (9)
  1. REMICADE [Suspect]
     Route: 042
     Dates: start: 20060331, end: 20060630
  2. REMICADE [Suspect]
     Route: 042
     Dates: start: 20060331, end: 20060630
  3. REMICADE [Suspect]
     Route: 042
     Dates: start: 20060331, end: 20060630
  4. REMICADE [Suspect]
     Indication: ANKYLOSING SPONDYLITIS
     Route: 042
     Dates: start: 20060331, end: 20060630
  5. ATENOLOL [Concomitant]
     Indication: HYPERTENSION
  6. OXAPROZIN [Concomitant]
     Indication: ANKYLOSING SPONDYLITIS
  7. DAYPRO [Concomitant]
  8. NSAIDS [Concomitant]
  9. UNSPECIFIED BLOOD PRESSURE MEDS [Concomitant]

REACTIONS (1)
  - BREAST CANCER [None]
